FAERS Safety Report 4489436-0 (Version None)
Quarter: 2004Q4

REPORT INFORMATION
  Report Type: 
  Country: None (occurrence: None)
  Receive Date: 20041101
  Receipt Date: 20041022
  Transmission Date: 20050328
  Serious: Yes (Other)
  Sender: FDA-Public Use
  Company Number: 200414035FR

PATIENT
  Age: 76 Year
  Sex: Female

DRUGS (5)
  1. ARAVA [Suspect]
     Indication: RHEUMATOID ARTHRITIS
     Route: 048
     Dates: start: 20040101, end: 20040701
  2. PREDNISONE TAB [Concomitant]
     Indication: RHEUMATOID ARTHRITIS
     Route: 048
  3. ACTONEL [Concomitant]
     Route: 048
  4. OS-CAL D [Concomitant]
     Route: 048
  5. CONTRAMAL [Concomitant]
     Route: 048

REACTIONS (6)
  - BLOOD PRESSURE DIASTOLIC DECREASED [None]
  - DEPRESSION [None]
  - DRUG INEFFECTIVE [None]
  - HEADACHE [None]
  - MONARTHRITIS [None]
  - SYNOVITIS [None]
